FAERS Safety Report 10451600 (Version 2)
Quarter: 2016Q1

REPORT INFORMATION
  Report Type: Spontaneous
  Country: US (occurrence: US)
  Receive Date: 20140914
  Receipt Date: 20160329
  Transmission Date: 20160525
  Serious: No
  Sender: FDA-Public Use
  Company Number: US-MALLINCKRODT-T201402996

PATIENT
  Sex: Female

DRUGS (1)
  1. XARTEMIS XR [Suspect]
     Active Substance: ACETAMINOPHEN\OXYCODONE HYDROCHLORIDE
     Indication: PRODUCT USED FOR UNKNOWN INDICATION
     Dosage: 7.5/325 MG, UNK
     Route: 065

REACTIONS (1)
  - Myalgia [Unknown]
